FAERS Safety Report 15160357 (Version 1)
Quarter: 2018Q3

REPORT INFORMATION
  Report Type: Spontaneous
  Country: US (occurrence: US)
  Receive Date: 20180718
  Receipt Date: 20180718
  Transmission Date: 20181010
  Serious: Yes (Other)
  Sender: FDA-Public Use
  Company Number: US-BAXTER-2018BAX019598

PATIENT
  Age: 76 Year
  Sex: Female

DRUGS (20)
  1. ETOPOSIDE. [Suspect]
     Active Substance: ETOPOSIDE
     Indication: DIFFUSE LARGE B-CELL LYMPHOMA
     Dosage: RECEIVED 2 CYCLES, DA?R?EPOCH THERAPY
     Route: 065
     Dates: start: 20180104, end: 20180125
  2. IFEX [Suspect]
     Active Substance: IFOSFAMIDE
     Indication: DIFFUSE LARGE B-CELL LYMPHOMA
     Dosage: CYCLE 1, R?ICE SALVAGE THERAPY
     Route: 065
     Dates: start: 20180308, end: 20180308
  3. IFEX [Suspect]
     Active Substance: IFOSFAMIDE
     Dosage: CYCLE 2, R?ICE SALVAGE THERAPY
     Route: 065
     Dates: start: 20180418, end: 20180418
  4. RITUXIMAB. [Suspect]
     Active Substance: RITUXIMAB
     Dosage: CYCLE 1, R?ICE SALVAGE THERAPY
     Route: 065
     Dates: start: 20180308, end: 20180308
  5. ETOPOSIDE. [Suspect]
     Active Substance: ETOPOSIDE
     Dosage: CYCLE 2, R?ICE SALVAGE THERAPY
     Route: 065
     Dates: start: 20180418, end: 20180418
  6. VINCRISTINE [Suspect]
     Active Substance: VINCRISTINE
     Indication: DIFFUSE LARGE B-CELL LYMPHOMA
     Dosage: RECEIVED 2 CYCLES, DA?R?EPOCH THERAPY
     Route: 065
     Dates: start: 20180104, end: 20180125
  7. CARBOPLATIN. [Suspect]
     Active Substance: CARBOPLATIN
     Indication: DIFFUSE LARGE B-CELL LYMPHOMA
     Dosage: CYCLE 1, R?ICE SALVAGE THERAPY
     Route: 065
     Dates: start: 20180308, end: 20180308
  8. CARBOPLATIN. [Suspect]
     Active Substance: CARBOPLATIN
     Dosage: CYCLE 2, R?ICE SALVAGE THERAPY
     Route: 065
     Dates: start: 20180418, end: 20180418
  9. METHOTREXATE. [Suspect]
     Active Substance: METHOTREXATE
     Indication: DIFFUSE LARGE B-CELL LYMPHOMA
     Dosage: HIGH DOSE CHEMOTHERAPY COURSE
     Route: 065
     Dates: start: 20180215, end: 20180215
  10. DOXORUBICIN [Suspect]
     Active Substance: DOXORUBICIN
     Indication: DIFFUSE LARGE B-CELL LYMPHOMA
     Dosage: RECEIVED 2 CYCLES, DA?R?EPOCH THERAPY
     Route: 065
     Dates: start: 20180104, end: 20180125
  11. RITUXIMAB. [Suspect]
     Active Substance: RITUXIMAB
     Indication: DIFFUSE LARGE B-CELL LYMPHOMA
     Dosage: RECEIVED 2 CYCLES, DA?R?EPOCH THERAPY
     Route: 065
     Dates: start: 20180104, end: 20180125
  12. ETOPOSIDE. [Suspect]
     Active Substance: ETOPOSIDE
     Dosage: CYCLE 1, R?ICE SALVAGE THERAPY
     Route: 065
     Dates: start: 20180308, end: 20180308
  13. METHOTREXATE. [Suspect]
     Active Substance: METHOTREXATE
     Dosage: HIGH DOSE CHEMOTHERAPY COURSE
     Route: 065
     Dates: start: 20180329, end: 20180329
  14. CYTARABINE. [Suspect]
     Active Substance: CYTARABINE
     Dosage: HIGH DOSE CHEMOTHERAPY COURSE
     Route: 065
     Dates: start: 20180329, end: 20180329
  15. CYTARABINE. [Suspect]
     Active Substance: CYTARABINE
     Indication: DIFFUSE LARGE B-CELL LYMPHOMA
     Dosage: HIGH DOSE CHEMOTHERAPY COURSE
     Route: 065
     Dates: start: 20180215, end: 20180215
  16. RITUXIMAB. [Suspect]
     Active Substance: RITUXIMAB
     Dosage: CYCLE 2, R?ICE SALVAGE THERAPY
     Route: 065
     Dates: start: 20180418, end: 20180418
  17. METHOTREXATE. [Suspect]
     Active Substance: METHOTREXATE
     Dosage: DOSAGE FORM: INFUSION
     Route: 037
     Dates: start: 20180309, end: 20180309
  18. CYCLOPHOSPHAMIDE FOR INJECTION, USP [Suspect]
     Active Substance: CYCLOPHOSPHAMIDE
     Indication: DIFFUSE LARGE B-CELL LYMPHOMA
     Dosage: RECEIVED 2 CYCLES, DA?R?EPOCH THERAPY
     Route: 065
     Dates: start: 20180104, end: 20180125
  19. PREDNISONE. [Suspect]
     Active Substance: PREDNISONE
     Indication: DIFFUSE LARGE B-CELL LYMPHOMA
     Dosage: RECEIVED 2 CYCLES, DA?R?EPOCH THERAPY
     Route: 065
     Dates: start: 20180104, end: 20180125
  20. METHOTREXATE. [Suspect]
     Active Substance: METHOTREXATE
     Dosage: DOSAGE FORM: INFUSION
     Route: 037
     Dates: start: 20180420, end: 20180420

REACTIONS (1)
  - Diffuse large B-cell lymphoma refractory [Unknown]
